FAERS Safety Report 5474265-1 (Version None)
Quarter: 2007Q4

REPORT INFORMATION
  Report Type: 
  Country: None (occurrence: None)
  Receive Date: 20071002
  Receipt Date: 20070621
  Transmission Date: 20080405
  Serious: No
  Sender: FDA-Public Use
  Company Number: US-ASTRAZENECA-2007UW14960

PATIENT
  Age: 54 Year
  Sex: Female
  Weight: 85.7 kg

DRUGS (3)
  1. ARIMIDEX [Suspect]
     Indication: BREAST CANCER
     Route: 048
  2. VITAMIN CAP [Concomitant]
  3. HERCEPTIN [Concomitant]

REACTIONS (1)
  - OCULAR HYPERAEMIA [None]
